FAERS Safety Report 19027660 (Version 1)
Quarter: 2021Q1

REPORT INFORMATION
  Report Type: Spontaneous
  Country: CA (occurrence: CA)
  Receive Date: 20210318
  Receipt Date: 20210318
  Transmission Date: 20210420
  Serious: Yes (Other)
  Sender: FDA-Public Use
  Company Number: CA-ALLERGAN-2111361US

PATIENT
  Sex: Male

DRUGS (3)
  1. MESALAZINE UNK [Suspect]
     Active Substance: MESALAMINE
     Indication: COLITIS
     Dosage: UNK
     Route: 048
  2. MERCAPTOPURINE. [Concomitant]
     Active Substance: MERCAPTOPURINE
  3. ENTYVIO IV FOR INFUSION [Concomitant]

REACTIONS (4)
  - Rectal haemorrhage [Unknown]
  - Dyspnoea [Unknown]
  - Colitis [Unknown]
  - Pulmonary embolism [Unknown]
